FAERS Safety Report 5045172-3 (Version None)
Quarter: 2006Q2

REPORT INFORMATION
  Report Type: 
  Country: None (occurrence: None)
  Receive Date: 20060601
  Receipt Date: 20060330
  Transmission Date: 20061013
  Serious: No
  Sender: FDA-Public Use
  Company Number: 2006-BP-03540BP

PATIENT
  Sex: Male

DRUGS (6)
  1. SPIRIVA [Suspect]
     Indication: CHRONIC OBSTRUCTIVE PULMONARY DISEASE
     Dosage: 18 MCG (18 MCG, 1 IN 1 D), IH
     Route: 055
     Dates: start: 20060309
  2. ADVAIR (SERETIDE /01420901/) [Concomitant]
  3. FLOMAX [Concomitant]
  4. ZOCOR [Concomitant]
  5. SINGULAIR [Concomitant]
  6. PROZAC [Concomitant]

REACTIONS (1)
  - URINE OUTPUT DECREASED [None]
